FAERS Safety Report 15137470 (Version 1)
Quarter: 2018Q3

REPORT INFORMATION
  Report Type: Report from Study
  Country: CN (occurrence: CN)
  Receive Date: 20180712
  Receipt Date: 20180712
  Transmission Date: 20181010
  Serious: Yes (Hospitalization)
  Sender: FDA-Public Use
  Company Number: CN-JNJFOC-20180636119

PATIENT
  Age: 11 Year
  Sex: Male

DRUGS (4)
  1. REMICADE [Suspect]
     Active Substance: INFLIXIMAB
     Indication: RHEUMATOID ARTHRITIS
     Route: 042
     Dates: start: 2015
  2. MOTRIN [Concomitant]
     Active Substance: IBUPROFEN
     Dosage: EVERY FIVE HOUR
     Route: 065
  3. MOTRIN [Concomitant]
     Active Substance: IBUPROFEN
     Dosage: TWICE A DAY OR 3 TIMES A DAY
     Route: 065
  4. MOTRIN [Concomitant]
     Active Substance: IBUPROFEN
     Route: 065
     Dates: start: 2011

REACTIONS (6)
  - Joint swelling [Not Recovered/Not Resolved]
  - Hospitalisation [Unknown]
  - Arthralgia [Not Recovered/Not Resolved]
  - Pyrexia [Not Recovered/Not Resolved]
  - Oedema peripheral [Unknown]
  - Synovial cyst [Unknown]

NARRATIVE: CASE EVENT DATE: 2018
